FAERS Safety Report 12317081 (Version 3)
Quarter: 2016Q2

REPORT INFORMATION
  Report Type: Spontaneous
  Country: HU (occurrence: HU)
  Receive Date: 20160429
  Receipt Date: 20160602
  Transmission Date: 20160815
  Serious: Yes (Other)
  Sender: FDA-Public Use
  Company Number: HU-009507513-1604HUN006886

PATIENT
  Age: 64 Year
  Sex: Male

DRUGS (5)
  1. NITROUS OXIDE. [Concomitant]
     Active Substance: NITROUS OXIDE
     Dosage: UNK
     Route: 055
     Dates: start: 20160404, end: 20160404
  2. FENTANYL. [Concomitant]
     Active Substance: FENTANYL
     Dosage: 50 MICROGRAMM/ML
     Dates: start: 20160404, end: 20160404
  3. ESMERON [Suspect]
     Active Substance: ROCURONIUM BROMIDE
     Indication: HYPOTONIA
     Dosage: IV. BOLI OF AN INITIAL 50MG, AND 20MG, 10MG (TWICE), AND 30MG SUBSEQUENTLY FOR A TOTAL DOSE OF 120MG
     Route: 040
     Dates: start: 20160404, end: 20160404
  4. SEVOFLURANE. [Concomitant]
     Active Substance: SEVOFLURANE
     Dosage: UNK
     Route: 055
     Dates: start: 20160404, end: 20160404
  5. PROPOFOL. [Concomitant]
     Active Substance: PROPOFOL
     Dosage: UNK
     Dates: start: 20160404, end: 20160404

REACTIONS (4)
  - Product quality issue [Unknown]
  - Drug effect incomplete [Recovered/Resolved]
  - Drug effect decreased [Recovered/Resolved]
  - Drug effect delayed [Recovered/Resolved]

NARRATIVE: CASE EVENT DATE: 20160404
